FAERS Safety Report 5199528-9 (Version None)
Quarter: 2006Q4

REPORT INFORMATION
  Report Type: 
  Country: None (occurrence: None)
  Receive Date: 20061229
  Receipt Date: 20061220
  Transmission Date: 20070319
  Serious: Yes (Other)
  Sender: FDA-Public Use
  Company Number: 2006-04-0010

PATIENT
  Age: 53 Year
  Sex: Female
  Weight: 54 kg

DRUGS (7)
  1. VIRAFERONPEG [Suspect]
     Indication: HEPATITIS C
     Dosage: 50 MCG
     Dates: start: 20050911, end: 20060320
  2. REBETOL [Suspect]
     Indication: HEPATITIS C
     Dosage: 4 DF; PO
     Route: 048
     Dates: start: 20050911, end: 20060320
  3. INTERFERON (MANUFACTURER UNKNOWN) (INTERFERON ALFA-2B) [Suspect]
     Indication: DRUG USE FOR UNKNOWN INDICATION
     Dates: start: 20060801
  4. TEGRETOL [Concomitant]
  5. VALSARTAN AND HYDROCHLOROTHIAZIDE [Concomitant]
  6. MEDIATENSYL [Concomitant]
  7. DIPENTUM [Concomitant]

REACTIONS (4)
  - BLOOD THYROID STIMULATING HORMONE DECREASED [None]
  - MALIGNANT MELANOMA [None]
  - PAPILLARY THYROID CANCER [None]
  - WEIGHT DECREASED [None]
